FAERS Safety Report 8537797-5 (Version None)
Quarter: 2012Q3

REPORT INFORMATION
  Report Type: 
  Country: None (occurrence: None)
  Receive Date: 20120725
  Receipt Date: 20120711
  Transmission Date: 20120928
  Serious: No
  Sender: FDA-Public Use
  Company Number: US-ASTRAZENECA-2012SE47869

PATIENT
  Age: 72 Year
  Sex: Female
  Weight: 90.7 kg

DRUGS (1)
  1. NEXIUM [Suspect]
     Route: 048

REACTIONS (5)
  - CHEST PAIN [None]
  - THROAT IRRITATION [None]
  - MALAISE [None]
  - DRUG DOSE OMISSION [None]
  - INTENTIONAL DRUG MISUSE [None]
